FAERS Safety Report 9610590 (Version 1)
Quarter: 2013Q4

REPORT INFORMATION
  Report Type: Spontaneous
  Country: NL (occurrence: NL)
  Receive Date: 20131009
  Receipt Date: 20131009
  Transmission Date: 20140711
  Serious: Yes (Death)
  Sender: FDA-Public Use
  Company Number: NL-009507513-1310NLD002885

PATIENT
  Age: 60 Year
  Sex: Female

DRUGS (3)
  1. MIRTAZAPINE [Suspect]
     Indication: DEPRESSION
     Dosage: 1 DF, QD
     Dates: start: 20130803
  2. DORMONOCT [Concomitant]
     Dosage: 1 MG, 1 TIMES PER 1 AS NECESSARY
     Dates: start: 20130702
  3. DIAZEPAM [Concomitant]
     Dosage: 5 MG, TID
     Dates: start: 20130710

REACTIONS (1)
  - Completed suicide [Fatal]
